FAERS Safety Report 18881864 (Version 1)
Quarter: 2021Q1

REPORT INFORMATION
  Report Type: Spontaneous
  Country: US (occurrence: US)
  Receive Date: 20210211
  Receipt Date: 20210211
  Transmission Date: 20210420
  Serious: Yes (Other)
  Sender: FDA-Public Use
  Company Number: US-PFIZER INC-2021136817

PATIENT
  Age: 72 Year
  Sex: Male

DRUGS (1)
  1. VANCOLED [Suspect]
     Active Substance: VANCOMYCIN HYDROCHLORIDE
     Indication: INFECTION
     Dosage: UNK

REACTIONS (1)
  - Abdominal pain [Recovered/Resolved]
